FAERS Safety Report 10173033 (Version 1)
Quarter: 2014Q2

REPORT INFORMATION
  Report Type: Report from Study
  Country: DE (occurrence: DE)
  Receive Date: 20140515
  Receipt Date: 20140515
  Transmission Date: 20141212
  Serious: No
  Sender: FDA-Public Use
  Company Number: PHHY2014DE058649

PATIENT
  Sex: Male

DRUGS (4)
  1. AMN107 [Suspect]
     Indication: CHRONIC MYELOID LEUKAEMIA
     Dosage: 600 MG, QD
     Route: 048
     Dates: start: 20130828
  2. PROPANOLOL [Concomitant]
     Dates: start: 20130101
  3. AMITRIPTYLINE [Concomitant]
     Dates: start: 20130101
  4. LITHIUM [Concomitant]
     Dates: start: 20130101

REACTIONS (1)
  - Eczema [Recovered/Resolved]
